FAERS Safety Report 22034887 (Version 1)
Quarter: 2023Q1

REPORT INFORMATION
  Report Type: Spontaneous
  Country: US (occurrence: None)
  Receive Date: 20230224
  Receipt Date: 20230224
  Transmission Date: 20230418
  Serious: Yes (Other)
  Sender: FDA-Public Use
  Company Number: 2023A042288

PATIENT
  Sex: Male
  Weight: 51.7 kg

DRUGS (10)
  1. NEXIUM [Suspect]
     Active Substance: ESOMEPRAZOLE MAGNESIUM
     Route: 048
  2. ACETAMINOPHEN [Concomitant]
     Active Substance: ACETAMINOPHEN
  3. HYDROCORTISONE [Concomitant]
     Active Substance: HYDROCORTISONE
  4. MECLIZINE [Concomitant]
     Active Substance: MECLIZINE HYDROCHLORIDE
  5. PANCRELIPASE [Concomitant]
     Active Substance: PANCRELIPASE
  6. SUCCINYLCHLOLINE [Concomitant]
  7. LIDOCAINE [Concomitant]
     Active Substance: LIDOCAINE
  8. PHENYLEPHRINE [Concomitant]
     Active Substance: PHENYLEPHRINE HYDROCHLORIDE
  9. ONDANSETRON [Concomitant]
     Active Substance: ONDANSETRON
  10. PROPOFOL [Concomitant]
     Active Substance: PROPOFOL

REACTIONS (4)
  - Gastric cancer [Unknown]
  - Pancreatic carcinoma [Unknown]
  - Metastases to liver [Unknown]
  - Cholangiocarcinoma [Unknown]
